FAERS Safety Report 20433337 (Version 2)
Quarter: 2022Q1

REPORT INFORMATION
  Report Type: Other
  Country: CA (occurrence: CA)
  Receive Date: 20220205
  Receipt Date: 20220223
  Transmission Date: 20220423
  Serious: Yes (Other)
  Sender: FDA-Public Use
  Company Number: CA-CELLTRION INC.-2022CA000993

PATIENT

DRUGS (6)
  1. RITUXIMAB [Suspect]
     Active Substance: RITUXIMAB
     Indication: Granulomatosis with polyangiitis
     Dosage: 1000.0 MG
     Route: 042
  2. ALENDRONATE SODIUM [Concomitant]
     Active Substance: ALENDRONATE SODIUM
  3. CANNABIDIOL [Concomitant]
     Active Substance: CANNABIDIOL
  4. DAPSONE [Concomitant]
     Active Substance: DAPSONE
     Dosage: 100 MG, EVERY 1 DAY
  5. METHOTREXATE [Concomitant]
     Active Substance: METHOTREXATE
     Dosage: 1.0 DOSAGE FORM
  6. PREDNISONE [Concomitant]
     Active Substance: PREDNISONE
     Dosage: 5 MG

REACTIONS (3)
  - Urinary tract infection [Unknown]
  - Therapeutic response unexpected [Unknown]
  - Off label use [Unknown]
